FAERS Safety Report 8911648 (Version 2)
Quarter: 2012Q4

REPORT INFORMATION
  Report Type: 
  Country: AU (occurrence: AU)
  Receive Date: 20121115
  Receipt Date: 20121130
  Transmission Date: 20130627
  Serious: Yes (Other)
  Sender: FDA-Public Use
  Company Number: AU-COVIDIEN/TYCO HEALTHCARE/MALLINCKRODT-T201203893

PATIENT
  Age: 50 Year
  Sex: Male

DRUGS (2)
  1. EXALGO EXTENDED RELEASE [Suspect]
     Indication: PAIN
     Dosage: 4 mg, once a day
     Route: 048
  2. EXALGO EXTENDED RELEASE [Suspect]
     Dosage: 20 mg, once a day
     Route: 048

REACTIONS (1)
  - Dystonia [Recovered/Resolved]
